FAERS Safety Report 15075362 (Version 1)
Quarter: 2018Q2

REPORT INFORMATION
  Report Type: Spontaneous
  Country: US (occurrence: US)
  Receive Date: 20180627
  Receipt Date: 20180627
  Transmission Date: 20180711
  Serious: Yes (Hospitalization, Other)
  Sender: FDA-Public Use
  Company Number: US-SAOL THERAPEUTICS-2017SAO01644

PATIENT
  Age: 51 Year
  Sex: Female
  Weight: 72.56 kg

DRUGS (6)
  1. ASPIRIN. [Concomitant]
     Active Substance: ASPIRIN
  2. LIORESAL [Suspect]
     Active Substance: BACLOFEN
     Dosage: 731 ?G, \DAY
     Route: 037
  3. LIORESAL [Suspect]
     Active Substance: BACLOFEN
     Indication: MUSCLE SPASTICITY
     Dosage: 539 ?G, \DAY
     Route: 037
  4. LIORESAL [Suspect]
     Active Substance: BACLOFEN
     Indication: PAIN
     Dosage: 710.7 ?G, \DAY
     Route: 037
  5. LIORESAL [Suspect]
     Active Substance: BACLOFEN
     Dosage: UNK
     Dates: start: 2006
  6. LIORESAL [Suspect]
     Active Substance: BACLOFEN
     Dosage: 400 ?G, \DAY
     Route: 037

REACTIONS (15)
  - Musculoskeletal stiffness [Unknown]
  - Asthenia [Unknown]
  - Implant site extravasation [Recovered/Resolved]
  - Exposure during pregnancy [Recovered/Resolved]
  - Device damage [Recovered/Resolved]
  - Mental status changes [Unknown]
  - Clonus [Unknown]
  - Pain in extremity [Unknown]
  - Muscle spasticity [Recovered/Resolved]
  - Pain [Unknown]
  - Muscle spasms [Unknown]
  - Therapy non-responder [Unknown]
  - Anxiety [Unknown]
  - Somatic symptom disorder [Unknown]
  - Performance status decreased [Not Recovered/Not Resolved]

NARRATIVE: CASE EVENT DATE: 20170919
